FAERS Safety Report 5230442-6 (Version None)
Quarter: 2007Q1

REPORT INFORMATION
  Report Type: 
  Country: None (occurrence: None)
  Receive Date: 20070206
  Receipt Date: 20070131
  Transmission Date: 20070707
  Serious: Yes (Hospitalization)
  Sender: FDA-Public Use
  Company Number: FRWYE701708JUN06

PATIENT
  Sex: Male
  Weight: 8.93 kg

DRUGS (4)
  1. PREVENAR [Suspect]
     Indication: IMMUNISATION
     Dates: start: 20051230, end: 20051230
  2. PREVENAR [Suspect]
     Dates: start: 20051020, end: 20051020
  3. SERETIDE [Concomitant]
  4. PREVENAR [Suspect]
     Dates: start: 20051123, end: 20051123

REACTIONS (7)
  - CEREBRAL ISCHAEMIA [None]
  - CONVULSIONS LOCAL [None]
  - DRUG INEFFECTIVE [None]
  - ELECTROENCEPHALOGRAM ABNORMAL [None]
  - INAPPROPRIATE ANTIDIURETIC HORMONE SECRETION [None]
  - MENINGITIS PNEUMOCOCCAL [None]
  - PNEUMOCOCCAL BACTERAEMIA [None]
